FAERS Safety Report 9523634 (Version 1)
Quarter: 2013Q3

REPORT INFORMATION
  Report Type: Spontaneous
  Country: US (occurrence: US)
  Receive Date: 20130913
  Receipt Date: 20130913
  Transmission Date: 20140515
  Serious: Yes (Death)
  Sender: FDA-Public Use
  Company Number: US-TARO-2013P1019206

PATIENT
  Sex: Female

DRUGS (1)
  1. WARFARIN [Suspect]

REACTIONS (3)
  - Incorrect dose administered [Fatal]
  - Death [Fatal]
  - Overdose [Fatal]
